FAERS Safety Report 10736656 (Version 4)
Quarter: 2015Q2

REPORT INFORMATION
  Report Type: Spontaneous
  Country: US (occurrence: US)
  Receive Date: 20150126
  Receipt Date: 20150504
  Transmission Date: 20150821
  Serious: Yes (Other)
  Sender: FDA-Public Use
  Company Number: US-PFIZER INC-2015029271

PATIENT
  Age: 54 Year
  Sex: Male

DRUGS (1)
  1. SUTENT [Suspect]
     Active Substance: SUNITINIB MALATE
     Indication: RENAL CANCER
     Dosage: 50 MG, DAILY
     Route: 048
     Dates: start: 20141020

REACTIONS (9)
  - Osteomyelitis [Unknown]
  - Cough [Unknown]
  - Gastrooesophageal reflux disease [Not Recovered/Not Resolved]
  - Gingival recession [Unknown]
  - Tooth infection [Unknown]
  - Hypertension [Unknown]
  - Oropharyngeal pain [Unknown]
  - Stomatitis [Not Recovered/Not Resolved]
  - Nasal congestion [Unknown]
